FAERS Safety Report 5348990-7 (Version None)
Quarter: 2007Q2

REPORT INFORMATION
  Report Type: 
  Country: None (occurrence: None)
  Receive Date: 20070607
  Receipt Date: 20070601
  Transmission Date: 20071010
  Serious: Yes (Other)
  Sender: FDA-Public Use
  Company Number: US-JNJFOC-20070600969

PATIENT
  Sex: Female
  Weight: 104.33 kg

DRUGS (12)
  1. ULTRAM [Suspect]
     Indication: FIBROMYALGIA
     Route: 048
  2. ULTRAM [Suspect]
     Indication: PAIN
     Route: 048
  3. METAFORMIN [Concomitant]
     Indication: DIABETES MELLITUS
     Route: 048
  4. SINGULAIR [Concomitant]
     Indication: ASTHMA
     Route: 048
  5. LYRICA [Concomitant]
     Indication: FIBROMYALGIA
     Dosage: 1 YEAR
     Route: 048
  6. SYNTHROID [Concomitant]
     Indication: THYROID DISORDER
     Dosage: 6 MONTHS
     Route: 048
  7. INVEGA [Concomitant]
     Indication: AFFECTIVE DISORDER
     Route: 048
  8. TOPAMAX [Concomitant]
     Indication: HEADACHE
     Dosage: 2 X 100 MG
     Route: 065
  9. CYMBALTA [Concomitant]
     Indication: DEPRESSION
     Route: 048
  10. ACIPHEX [Concomitant]
     Indication: GASTROOESOPHAGEAL REFLUX DISEASE
     Route: 048
  11. ZYRTEC [Concomitant]
     Indication: MULTIPLE ALLERGIES
     Route: 065
  12. ZANAFLEX [Concomitant]
     Indication: MUSCLE RELAXANT THERAPY
     Dosage: EVERY NIGHT
     Route: 048

REACTIONS (2)
  - HEADACHE [None]
  - INTRACRANIAL PRESSURE INCREASED [None]
